FAERS Safety Report 26130744 (Version 1)
Quarter: 2025Q4

REPORT INFORMATION
  Report Type: Spontaneous
  Country: US (occurrence: None)
  Receive Date: 20251208
  Receipt Date: 20251208
  Transmission Date: 20260117
  Serious: Yes (Life-Threatening)
  Sender: FDA-CTU
  Company Number: None

PATIENT
  Age: 70 Year
  Sex: Male

DRUGS (1)
  1. IOHEXOL [Suspect]
     Active Substance: IOHEXOL
     Dates: start: 20250724, end: 20250724

REACTIONS (4)
  - Stevens-Johnson syndrome [None]
  - Cellulitis [None]
  - Neuropathy peripheral [None]
  - Haemorrhage [None]

NARRATIVE: CASE EVENT DATE: 20251016
